FAERS Safety Report 5367222-7 (Version None)
Quarter: 2007Q2

REPORT INFORMATION
  Report Type: 
  Country: None (occurrence: None)
  Receive Date: 20070619
  Receipt Date: 20070619
  Transmission Date: 20071010
  Serious: Yes (Hospitalization)
  Sender: FDA-Public Use
  Company Number: None

PATIENT
  Age: 82 Year
  Sex: Male

DRUGS (2)
  1. WARFARIN SODIUM [Suspect]
     Indication: CARDIOVASCULAR DISORDER
     Dosage: 5MG EVERY DAY PO
     Route: 048
     Dates: start: 20060825, end: 20070406
  2. WARFARIN SODIUM [Suspect]
     Indication: SURGERY
     Dosage: 5MG EVERY DAY PO
     Route: 048
     Dates: start: 20060825, end: 20070406

REACTIONS (2)
  - GASTROINTESTINAL HAEMORRHAGE [None]
  - HAEMORRHAGE [None]
